FAERS Safety Report 19172191 (Version 4)
Quarter: 2021Q3

REPORT INFORMATION
  Report Type: Spontaneous
  Country: US (occurrence: US)
  Receive Date: 20210423
  Receipt Date: 20210823
  Transmission Date: 20211014
  Serious: No
  Sender: FDA-Public Use
  Company Number: US-BAUSCH-BL-2021-011895

PATIENT
  Age: 55 Year
  Sex: Female
  Weight: 113.05 kg

DRUGS (8)
  1. PYRIDOSTIGMINE BROMIDE TABLETS [Suspect]
     Active Substance: PYRIDOSTIGMINE BROMIDE
     Indication: MUSCULAR WEAKNESS
     Route: 065
     Dates: start: 202007, end: 2020
  2. PYRIDOSTIGMINE BROMIDE TABLETS [Suspect]
     Active Substance: PYRIDOSTIGMINE BROMIDE
     Dosage: RESTARTED IN /DEC/2020 OR /JAN/2021
     Route: 065
  3. FIRDAPSE [Suspect]
     Active Substance: AMIFAMPRIDINE PHOSPHATE
     Route: 048
     Dates: start: 20210323
  4. PYRIDOSTIGMINE BROMIDE TABLETS [Suspect]
     Active Substance: PYRIDOSTIGMINE BROMIDE
     Route: 065
     Dates: start: 202009
  5. EZETIMIBE. [Concomitant]
     Active Substance: EZETIMIBE
     Indication: PRODUCT USED FOR UNKNOWN INDICATION
  6. PREDNISONE. [Concomitant]
     Active Substance: PREDNISONE
     Indication: PRODUCT USED FOR UNKNOWN INDICATION
  7. FIRDAPSE [Suspect]
     Active Substance: AMIFAMPRIDINE PHOSPHATE
     Route: 048
  8. FIRDAPSE [Suspect]
     Active Substance: AMIFAMPRIDINE PHOSPHATE
     Indication: MYASTHENIC SYNDROME
     Route: 048
     Dates: start: 20210222, end: 20210322

REACTIONS (4)
  - Paraesthesia oral [Not Recovered/Not Resolved]
  - Paraesthesia [Not Recovered/Not Resolved]
  - Abdominal pain upper [Not Recovered/Not Resolved]
  - Diarrhoea [Not Recovered/Not Resolved]

NARRATIVE: CASE EVENT DATE: 20210222
